FAERS Safety Report 21141700 (Version 10)
Quarter: 2023Q1

REPORT INFORMATION
  Report Type: Report from Study
  Country: CA (occurrence: CA)
  Receive Date: 20220728
  Receipt Date: 20230323
  Transmission Date: 20230418
  Serious: Yes (Other)
  Sender: FDA-Public Use
  Company Number: CA-TAKEDA-2022TUS013566

PATIENT
  Age: 71 Year
  Sex: Female

DRUGS (3)
  1. VEDOLIZUMAB [Suspect]
     Active Substance: VEDOLIZUMAB
     Indication: Crohn^s disease
     Dosage: 300 MILLIGRAM
     Route: 042
     Dates: start: 20210921
  2. VEDOLIZUMAB [Suspect]
     Active Substance: VEDOLIZUMAB
     Dosage: 300 MILLIGRAM, Q4WEEKS
     Route: 042
     Dates: start: 20220627
  3. VENOFER [Concomitant]
     Active Substance: IRON SUCROSE
     Dosage: UNK

REACTIONS (21)
  - Crohn^s disease [Unknown]
  - Malaise [Unknown]
  - Diarrhoea [Not Recovered/Not Resolved]
  - Abdominal discomfort [Unknown]
  - Anaemia [Unknown]
  - Migraine [Unknown]
  - Abdominal mass [Unknown]
  - Hypoaesthesia [Unknown]
  - Frequent bowel movements [Unknown]
  - Off label use [Unknown]
  - Abdominal pain [Not Recovered/Not Resolved]
  - Dyspnoea [Unknown]
  - Vomiting [Unknown]
  - Vision blurred [Unknown]
  - Arthralgia [Unknown]
  - Fatigue [Unknown]
  - Oropharyngeal pain [Unknown]
  - Pruritus [Unknown]
  - Cough [Unknown]
  - Pain in extremity [Unknown]
  - Nausea [Unknown]

NARRATIVE: CASE EVENT DATE: 20211230
